FAERS Safety Report 6792673-3 (Version None)
Quarter: 2010Q2

REPORT INFORMATION
  Report Type: 
  Country: None (occurrence: None)
  Receive Date: 20100624
  Receipt Date: 20080830
  Transmission Date: 20101027
  Serious: No
  Sender: FDA-Public Use
  Company Number: US-PFIZER INC-2008073553

PATIENT
  Sex: Female
  Weight: 104.54 kg

DRUGS (1)
  1. XALATAN [Suspect]
     Indication: GLAUCOMA
     Dates: start: 20080829

REACTIONS (2)
  - EYE DISORDER [None]
  - OCULAR HYPERAEMIA [None]
